FAERS Safety Report 10044050 (Version 2)
Quarter: 2014Q1

REPORT INFORMATION
  Report Type: Spontaneous
  Country: US (occurrence: US)
  Receive Date: 20140328
  Receipt Date: 20140328
  Transmission Date: 20141002
  Serious: No
  Sender: FDA-Public Use
  Company Number: US-MYLANLABS-2013S1021830

PATIENT
  Age: 44 Year
  Sex: Female
  Weight: 52.16 kg

DRUGS (2)
  1. EMSAM (SELEGILINE TRANSDERMAL SYSTEM) [Suspect]
     Indication: DEPRESSION
     Dosage: CHANGING THE PATCH EVERY MWF
     Route: 062
     Dates: start: 201307, end: 2013
  2. EMSAM (SELEGILINE TRANSDERMAL SYSTEM) [Suspect]
     Indication: DEPRESSION
     Dosage: CHANGING THE PATCH EVERY MWF
     Route: 062
     Dates: start: 2013, end: 201310

REACTIONS (5)
  - Application site rash [Recovered/Resolved]
  - Application site discolouration [Recovered/Resolved]
  - Application site erythema [Recovered/Resolved]
  - Unevaluable event [Recovered/Resolved]
  - Incorrect drug administration duration [Recovered/Resolved]
